FAERS Safety Report 5079066-4 (Version None)
Quarter: 2006Q3

REPORT INFORMATION
  Report Type: 
  Country: None (occurrence: None)
  Receive Date: 20060814
  Receipt Date: 20060713
  Transmission Date: 20061208
  Serious: Yes (Disabling)
  Sender: FDA-Public Use
  Company Number: 2006GB01222

PATIENT
  Age: 708 Month
  Sex: Male
  Weight: 90 kg

DRUGS (1)
  1. ZOLADEX [Suspect]
     Indication: PROSTATE CANCER
     Route: 058
     Dates: start: 20050501, end: 20050701

REACTIONS (1)
  - PHOTOSENSITIVITY REACTION [None]
